FAERS Safety Report 5171281-4 (Version None)
Quarter: 2006Q4

REPORT INFORMATION
  Report Type: 
  Country: None (occurrence: None)
  Receive Date: 20061213
  Receipt Date: 20040814
  Transmission Date: 20070319
  Serious: Yes (Hospitalization)
  Sender: FDA-Public Use
  Company Number: US-AMGEN-KDL088048

PATIENT
  Sex: Female

DRUGS (3)
  1. ENBREL [Suspect]
     Indication: PSORIATIC ARTHROPATHY
     Route: 058
     Dates: start: 20030901
  2. METHOTREXATE [Concomitant]
     Route: 058
     Dates: start: 19930101
  3. INSULIN [Concomitant]

REACTIONS (8)
  - CONTUSION [None]
  - DIABETIC RETINOPATHY [None]
  - FALL [None]
  - INJECTION SITE BRUISING [None]
  - INJECTION SITE PAIN [None]
  - PAIN IN EXTREMITY [None]
  - PNEUMONIA [None]
  - SEPSIS [None]
